FAERS Safety Report 6016300-8 (Version None)
Quarter: 2008Q4

REPORT INFORMATION
  Report Type: 
  Country: None (occurrence: None)
  Receive Date: 20081218
  Receipt Date: 20081203
  Transmission Date: 20090506
  Serious: Yes (Hospitalization)
  Sender: FDA-Public Use
  Company Number: KV200800894

PATIENT
  Age: 38 Year
  Sex: Female
  Weight: 63.5 kg

DRUGS (3)
  1. ISOSORBIDE MONONITRATE [Suspect]
     Indication: ANXIETY
     Dosage: 1 TAB, QD, ORAL
     Route: 048
     Dates: start: 20060101, end: 20060101
  2. AZAR [Concomitant]
  3. HYDROCHLOROTHIAZIDE [Concomitant]

REACTIONS (4)
  - CARDIOMEGALY [None]
  - CHEST PAIN [None]
  - ENDOCARDITIS [None]
  - PRODUCT QUALITY ISSUE [None]
